FAERS Safety Report 25539019 (Version 1)
Quarter: 2025Q3

REPORT INFORMATION
  Report Type: Spontaneous
  Country: US (occurrence: None)
  Receive Date: 20250709
  Receipt Date: 20250709
  Transmission Date: 20251021
  Serious: Yes (Disabling)
  Sender: FDA-CTU
  Company Number: None

PATIENT
  Age: 33 Year
  Sex: Male
  Weight: 67.5 kg

DRUGS (3)
  1. TYMLOS [Suspect]
     Active Substance: ABALOPARATIDE
     Indication: Osteoporosis
     Dosage: OTHER QUANTITY : 1 INJECTION(S);?FREQUENCY : DAILY;?
     Route: 058
  2. CALCIUM [Suspect]
     Active Substance: CALCIUM
  3. VITAMIN D NOS [Suspect]
     Active Substance: CHOLECALCIFEROL\ERGOCALCIFEROL

REACTIONS (6)
  - Arthralgia [None]
  - Injection related reaction [None]
  - Dizziness [None]
  - Hypercalciuria [None]
  - Heart rate increased [None]
  - Crystal urine present [None]

NARRATIVE: CASE EVENT DATE: 20250228
